FAERS Safety Report 22177258 (Version 1)
Quarter: 2023Q2

REPORT INFORMATION
  Report Type: Spontaneous
  Country: DE (occurrence: None)
  Receive Date: 20230405
  Receipt Date: 20230405
  Transmission Date: 20230722
  Serious: Yes (Other)
  Sender: FDA-Public Use
  Company Number: 2023A072333

PATIENT
  Age: 76 Year
  Sex: Female
  Weight: 83 kg

DRUGS (11)
  1. DAPAGLIFLOZIN [Suspect]
     Active Substance: DAPAGLIFLOZIN
     Indication: Diabetes mellitus
     Dates: end: 202203
  2. METAMIZOLE [Concomitant]
     Active Substance: METAMIZOLE
     Dosage: 500 MG 1-1-1-1
  3. ASPIRIN [Concomitant]
     Active Substance: ASPIRIN
  4. NALOXONE HYDROCHLORIDE\TILIDINE HYDROCHLORIDE [Concomitant]
     Active Substance: NALOXONE HYDROCHLORIDE\TILIDINE HYDROCHLORIDE
     Dosage: 100/8 MG 1-0-1
  5. BENSERAZIDE\LEVODOPA [Concomitant]
     Active Substance: BENSERAZIDE\LEVODOPA
     Dosage: 100/25 MG 0-0-2
  6. RAMIPRIL [Concomitant]
     Active Substance: RAMIPRIL
     Indication: Hypertension
     Dosage: 5/25 MG 1-0-1
  7. PANTOZOL [Concomitant]
     Active Substance: PANTOPRAZOLE SODIUM
  8. BISOPROLOL [Concomitant]
     Active Substance: BISOPROLOL
  9. METFORMIN HYDROCHLORIDE [Concomitant]
     Active Substance: METFORMIN HYDROCHLORIDE
     Indication: Diabetes mellitus
     Dosage: 850 MG 1-0-1
  10. ATORVASTATIN [Concomitant]
     Active Substance: ATORVASTATIN
  11. EZETIMIBE [Concomitant]
     Active Substance: EZETIMIBE

REACTIONS (1)
  - Hepatic enzyme increased [Unknown]

NARRATIVE: CASE EVENT DATE: 20230127
